FAERS Safety Report 8058529 (Version 9)
Quarter: 2013Q2

REPORT INFORMATION
  Report Type: Report from Study
  Country: DE (occurrence: DE)
  Receive Date: 20110728
  Receipt Date: 20130625
  Transmission Date: 20140414
  Serious: Yes (Life-Threatening, Hospitalization)
  Sender: FDA-Public Use
  Company Number: DE-B.I. PHARMACEUTICALS,INC./RIDGEFIELD-2011-DE-04237DE

PATIENT
  Age: 68 Year
  Sex: Male
  Weight: 67.6 kg

DRUGS (7)
  1. TIOTROPIUM BROMIDE [Suspect]
     Indication: CHRONIC OBSTRUCTIVE PULMONARY DISEASE
     Dosage: 5 MCG
     Route: 055
     Dates: start: 20100710, end: 20110620
  2. MARCUMAR [Concomitant]
     Indication: HEART VALVE REPLACEMENT
     Dosage: DAILY DOSE: 1/2
     Dates: start: 2005
  3. METOPROLOL [Concomitant]
     Indication: HYPERTENSION
     Dosage: 200 MG
     Dates: start: 2005
  4. RAMIPRIL [Concomitant]
     Indication: HYPERTENSION
     Dosage: 5 MG
     Dates: start: 2005
  5. ?-ACETYLDIGOXIN [Concomitant]
     Indication: TACHYCARDIA
     Dosage: 0.4 MG
     Dates: start: 2005
  6. ASS 100 [Concomitant]
     Indication: MYOCARDIAL ISCHAEMIA
     Dosage: 200 MG
     Dates: start: 20080819
  7. NORVASC [Concomitant]
     Indication: CARDIAC FAILURE
     Dosage: 5 MG
     Dates: start: 20110216

REACTIONS (2)
  - Myocardial ischaemia [Recovered/Resolved]
  - Pneumonia [Not Recovered/Not Resolved]
